FAERS Safety Report 6168160-2 (Version None)
Quarter: 2009Q2

REPORT INFORMATION
  Report Type: 
  Country: None (occurrence: None)
  Receive Date: 20090423
  Receipt Date: 20090421
  Transmission Date: 20091009
  Serious: Yes (Hospitalization)
  Sender: FDA-Public Use
  Company Number: 1000005032

PATIENT
  Age: 59 Year
  Sex: Male
  Weight: 107.9561 kg

DRUGS (9)
  1. BYSTOLIC [Suspect]
     Indication: HYPERTENSION
     Dosage: 20 MG (10 MG, 2 IN 1 D), ORAL
     Route: 048
     Dates: start: 20090225
  2. CIALIS [Suspect]
     Indication: ERECTILE DYSFUNCTION
     Dosage: 10 MG, ORAL
     Route: 048
     Dates: start: 20090225
  3. CARDURA [Concomitant]
  4. TRICOR [Concomitant]
  5. AVAPRO [Concomitant]
  6. LOVAZA [Concomitant]
  7. PRANDIN [Concomitant]
  8. ACIPHEX [Concomitant]
  9. LIPITOR [Concomitant]

REACTIONS (2)
  - ACUTE PULMONARY OEDEMA [None]
  - DRUG INTERACTION [None]
